FAERS Safety Report 12630669 (Version 1)
Quarter: 2016Q3

REPORT INFORMATION
  Report Type: Spontaneous
  Country: BR (occurrence: BR)
  Receive Date: 20160808
  Receipt Date: 20160808
  Transmission Date: 20161109
  Serious: Yes (Other)
  Sender: FDA-Public Use
  Company Number: BR-JNJFOC-20160800381

PATIENT
  Age: 46 Year
  Sex: Female

DRUGS (5)
  1. ASPIRINA [Suspect]
     Active Substance: ASPIRIN
     Indication: PRODUCT USED FOR UNKNOWN INDICATION
     Route: 065
  2. XARELTO [Suspect]
     Active Substance: RIVAROXABAN
     Indication: THROMBOSIS
     Route: 048
     Dates: start: 20160711
  3. SERTRALINE [Concomitant]
     Active Substance: SERTRALINE HYDROCHLORIDE
     Indication: ANXIETY
     Route: 048
     Dates: start: 20160727
  4. DIENOGEST [Suspect]
     Active Substance: DIENOGEST
     Indication: ENDOMETRIOSIS
     Route: 048
     Dates: start: 2016, end: 2016
  5. NORIPURUM [Concomitant]
     Active Substance: IRON POLYMALTOSE
     Indication: ANAEMIA
     Route: 048
     Dates: start: 20160726

REACTIONS (10)
  - Asthenia [Not Recovered/Not Resolved]
  - Vaginal haemorrhage [Unknown]
  - Drug hypersensitivity [Unknown]
  - Chest pain [Not Recovered/Not Resolved]
  - Deep vein thrombosis [Unknown]
  - Dyspnoea [Not Recovered/Not Resolved]
  - Amenorrhoea [Recovered/Resolved]
  - Tachycardia [Unknown]
  - Anaemia [Unknown]
  - Malaise [Not Recovered/Not Resolved]

NARRATIVE: CASE EVENT DATE: 2016
